FAERS Safety Report 8051513-5 (Version None)
Quarter: 2012Q1

REPORT INFORMATION
  Report Type: 
  Country: None (occurrence: None)
  Receive Date: 20120117
  Receipt Date: 20120112
  Transmission Date: 20120608
  Serious: No
  Sender: FDA-Public Use
  Company Number: US-BAYER-2012-005030

PATIENT
  Age: 39 Year
  Sex: Male
  Weight: 113 kg

DRUGS (2)
  1. NAPROXEN (ALEVE) [Suspect]
     Dosage: 1 TABLET ONCE X1 DOSE
     Route: 048
     Dates: start: 20110112
  2. NAPROXEN (ALEVE) [Suspect]
     Dosage: 1 TABLET IN THE MORNING X1 DOSE
     Route: 048
     Dates: start: 20120111

REACTIONS (2)
  - OROPHARYNGEAL PAIN [None]
  - RASH [None]
